FAERS Safety Report 6064404-6 (Version None)
Quarter: 2009Q1

REPORT INFORMATION
  Report Type: 
  Country: None (occurrence: None)
  Receive Date: 20090204
  Receipt Date: 20090127
  Transmission Date: 20090719
  Serious: Yes (Other)
  Sender: FDA-Public Use
  Company Number: US-AVENTIS-200910701US

PATIENT
  Sex: Female

DRUGS (17)
  1. LANTUS [Suspect]
     Route: 058
     Dates: start: 20080101
  2. OPTICLIK (INSULIN INJECTION PEN) [Suspect]
     Dates: start: 20080101
  3. NOVOLOG [Concomitant]
     Dosage: DOSE: 3 UNITS AT BREAKFAST AND LUNCH AND 2 UNITS  AT DINNER
     Route: 058
  4. CYMBALTA [Concomitant]
  5. CLONAZEPAM [Concomitant]
  6. LOTREL [Concomitant]
     Dosage: DOSE: 5/20
  7. PLAVIX [Concomitant]
     Route: 048
  8. VICODIN [Concomitant]
     Dosage: DOSE: FOR BREAKTHROUGH PAIN
  9. FLUTICASONE PROPIONATE [Concomitant]
     Dosage: DOSE: 2 PUFFS
  10. ADVAIR DISKUS 100/50 [Concomitant]
     Dosage: DOSE: 500 MG 1 PUFF
  11. SINGULAIR [Concomitant]
  12. COMBIVENT                          /01261001/ [Concomitant]
  13. SLOW RELEASE MORPHINE [Concomitant]
  14. CITALOPRAM [Concomitant]
  15. POTASSIUM CHLORIDE [Concomitant]
  16. FEXOFENADINE [Concomitant]
     Route: 048
  17. LIPITOR [Concomitant]

REACTIONS (1)
  - BLINDNESS [None]
